FAERS Safety Report 26174768 (Version 1)
Quarter: 2025Q4

REPORT INFORMATION
  Report Type: Spontaneous
  Country: GB (occurrence: GB)
  Receive Date: 20251218
  Receipt Date: 20251218
  Transmission Date: 20260118
  Serious: Yes (Other)
  Sender: MYLAN
  Company Number: None

PATIENT
  Age: 58 Year
  Sex: Male
  Weight: 75 kg

DRUGS (8)
  1. APIXABAN [Suspect]
     Active Substance: APIXABAN
     Indication: Atrial fibrillation
     Dosage: 20 MILLIGRAM, BID (TWICE DAILY)
     Dates: start: 20250630
  2. APIXABAN [Suspect]
     Active Substance: APIXABAN
     Dosage: 20 MILLIGRAM, BID (TWICE DAILY)
     Route: 065
     Dates: start: 20250630
  3. APIXABAN [Suspect]
     Active Substance: APIXABAN
     Dosage: 20 MILLIGRAM, BID (TWICE DAILY)
     Route: 065
     Dates: start: 20250630
  4. APIXABAN [Suspect]
     Active Substance: APIXABAN
     Dosage: 20 MILLIGRAM, BID (TWICE DAILY)
     Dates: start: 20250630
  5. AMLODIPINE [Concomitant]
     Active Substance: AMLODIPINE BESYLATE
     Indication: Hypertension
     Dosage: UNK
  6. AMLODIPINE [Concomitant]
     Active Substance: AMLODIPINE BESYLATE
     Dosage: UNK
     Route: 065
  7. AMLODIPINE [Concomitant]
     Active Substance: AMLODIPINE BESYLATE
     Dosage: UNK
     Route: 065
  8. AMLODIPINE [Concomitant]
     Active Substance: AMLODIPINE BESYLATE
     Dosage: UNK

REACTIONS (1)
  - Arthralgia [Not Recovered/Not Resolved]

NARRATIVE: CASE EVENT DATE: 20250801
